APPROVED DRUG PRODUCT: HYDROCORTISONE AND ACETIC ACID
Active Ingredient: ACETIC ACID, GLACIAL; HYDROCORTISONE
Strength: 2%;1%
Dosage Form/Route: SOLUTION/DROPS;OTIC
Application: A040609 | Product #001 | TE Code: AT
Applicant: COSETTE PHARMACEUTICALS INC
Approved: Feb 6, 2006 | RLD: No | RS: No | Type: RX